FAERS Safety Report 5487186-5 (Version None)
Quarter: 2007Q4

REPORT INFORMATION
  Report Type: 
  Country: None (occurrence: None)
  Receive Date: 20071016
  Receipt Date: 20071001
  Transmission Date: 20080405
  Serious: Yes (Life-Threatening, Hospitalization)
  Sender: FDA-Public Use
  Company Number: CZ-GENENTECH-249429

PATIENT
  Sex: Female

DRUGS (3)
  1. AVASTIN [Suspect]
     Indication: COLORECTAL CANCER
     Dosage: 7.5 MG/KG, Q3W
     Dates: start: 20070821
  2. CAPECITABINE [Concomitant]
     Indication: COLORECTAL CANCER
  3. OXALIPLATIN [Concomitant]
     Indication: COLORECTAL CANCER

REACTIONS (4)
  - DIARRHOEA [None]
  - METABOLIC DISORDER [None]
  - NAUSEA [None]
  - VOMITING [None]
